FAERS Safety Report 10566593 (Version 1)
Quarter: 2014Q4

REPORT INFORMATION
  Report Type: Spontaneous
  Country: FR (occurrence: FR)
  Receive Date: 20141105
  Receipt Date: 20141105
  Transmission Date: 20150529
  Serious: Yes (Hospitalization)
  Sender: FDA-Public Use
  Company Number: FR-PFIZER INC-2014301715

PATIENT
  Age: 27 Year
  Sex: Female

DRUGS (4)
  1. SYNAREL [Suspect]
     Active Substance: NAFARELIN ACETATE
     Indication: ARTIFICIAL INSEMINATION BY PARTNER
     Dosage: UNK
     Route: 045
     Dates: start: 20140514, end: 20140525
  2. PROGESTAN [Suspect]
     Active Substance: PROGESTERONE
     Indication: ARTIFICIAL INSEMINATION BY PARTNER
     Dosage: UNK
     Route: 067
     Dates: start: 20140528, end: 20140714
  3. FOLLITROPIN BETA [Suspect]
     Active Substance: FOLLITROPIN
     Indication: ARTIFICIAL INSEMINATION BY PARTNER
     Dosage: 75 IU, 1X/DAY
     Route: 058
     Dates: start: 20140514, end: 20140525
  4. OVITRELLE [Suspect]
     Active Substance: CHORIOGONADOTROPIN ALFA
     Indication: ARTIFICIAL INSEMINATION BY PARTNER
     Dosage: 1 DF, SINGLE
     Route: 058
     Dates: start: 20140526, end: 20140526

REACTIONS (1)
  - Erythema nodosum [Recovering/Resolving]

NARRATIVE: CASE EVENT DATE: 201405
